FAERS Safety Report 12368135 (Version 1)
Quarter: 2016Q2

REPORT INFORMATION
  Report Type: Spontaneous
  Country: US (occurrence: US)
  Receive Date: 20160513
  Receipt Date: 20160513
  Transmission Date: 20160815
  Serious: No
  Sender: FDA-Public Use
  Company Number: US-APOTEX-2015AP014435

PATIENT
  Age: 17 Year
  Sex: Female

DRUGS (2)
  1. OLANZAPINE. [Suspect]
     Active Substance: OLANZAPINE
     Indication: PRODUCT USED FOR UNKNOWN INDICATION
     Route: 065
  2. PHENELZINE [Suspect]
     Active Substance: PHENELZINE
     Indication: PRODUCT USED FOR UNKNOWN INDICATION
     Dosage: UNK
     Route: 065

REACTIONS (4)
  - Anxiety [Recovered/Resolved]
  - Myoclonus [Recovered/Resolved]
  - Nightmare [Recovered/Resolved]
  - Agitation [Recovered/Resolved]
